FAERS Safety Report 21978324 (Version 1)
Quarter: 2023Q1

REPORT INFORMATION
  Report Type: Spontaneous
  Country: None (occurrence: PL)
  Receive Date: 20230210
  Receipt Date: 20230210
  Transmission Date: 20230417
  Serious: Yes (Other)
  Sender: FDA-Public Use
  Company Number: PL-B.Braun Medical Inc.-2137751

PATIENT
  Age: 78 Year
  Sex: Female

DRUGS (7)
  1. ACETAMINOPHEN [Suspect]
     Active Substance: ACETAMINOPHEN
     Indication: Bronchitis
  2. METOPROLOL [Suspect]
     Active Substance: METOPROLOL
  3. ZOFENOPRIL [Suspect]
     Active Substance: ZOFENOPRIL
  4. TORSEMIDE [Suspect]
     Active Substance: TORSEMIDE
  5. ERDOSTEINE [Suspect]
     Active Substance: ERDOSTEINE
  6. CLARITHROMYCIN [Interacting]
     Active Substance: CLARITHROMYCIN
  7. AMLODIPINE BESYLATE [Interacting]
     Active Substance: AMLODIPINE BESYLATE

REACTIONS (8)
  - Bronchitis [Unknown]
  - Thirst [Unknown]
  - Oedema peripheral [Unknown]
  - Asthenia [Unknown]
  - Nausea [Unknown]
  - Vomiting [Unknown]
  - Hyponatraemia [Unknown]
  - Peripheral swelling [Unknown]
